FAERS Safety Report 8047793-2 (Version None)
Quarter: 2012Q1

REPORT INFORMATION
  Report Type: 
  Country: None (occurrence: None)
  Receive Date: 20120116
  Receipt Date: 20120106
  Transmission Date: 20120608
  Serious: Yes (Hospitalization, Other)
  Sender: FDA-Public Use
  Company Number: US-ELI_LILLY_AND_COMPANY-US201201002359

PATIENT
  Sex: Male

DRUGS (3)
  1. HUMALOG MIX 75/25 [Suspect]
     Indication: TYPE 2 DIABETES MELLITUS
     Dosage: UNK UNK, PRN
  2. HUMALOG MIX 75/25 [Suspect]
     Dosage: UNK, PRN
  3. LANTUS [Concomitant]
     Dosage: UNK

REACTIONS (11)
  - STAPHYLOCOCCAL INFECTION [None]
  - NEUROPATHIC ARTHROPATHY [None]
  - SCLERODERMA [None]
  - BLOOD GLUCOSE INCREASED [None]
  - INTENTIONAL DRUG MISUSE [None]
  - BONE DISORDER [None]
  - BLOOD GLUCOSE DECREASED [None]
  - INCORRECT STORAGE OF DRUG [None]
  - INCORRECT DOSE ADMINISTERED [None]
  - CARDIAC DISORDER [None]
  - PULMONARY MASS [None]
